FAERS Safety Report 11799043 (Version 8)
Quarter: 2016Q3

REPORT INFORMATION
  Report Type: Report from Study
  Country: US (occurrence: US)
  Receive Date: 20151203
  Receipt Date: 20160810
  Transmission Date: 20161109
  Serious: Yes (Hospitalization)
  Sender: FDA-Public Use
  Company Number: US-BAYER-2014-154171

PATIENT
  Age: 76 Year
  Sex: Female
  Weight: 68.27 kg

DRUGS (14)
  1. ADEMPAS [Suspect]
     Active Substance: RIOCIGUAT
     Indication: PULMONARY ARTERIAL HYPERTENSION
     Dosage: 2.5 MG, TID
     Route: 048
  2. ADEMPAS [Suspect]
     Active Substance: RIOCIGUAT
     Indication: PULMONARY ARTERIAL HYPERTENSION
     Dosage: 2.5 MG, TID
     Route: 048
  3. TYVASO [Suspect]
     Active Substance: TREPROSTINIL
  4. ADEMPAS [Suspect]
     Active Substance: RIOCIGUAT
     Indication: PULMONARY ARTERIAL HYPERTENSION
     Dosage: 2.5 MG, TID
     Route: 048
  5. ADEMPAS [Suspect]
     Active Substance: RIOCIGUAT
     Indication: PULMONARY ARTERIAL HYPERTENSION
     Dosage: 2.5 MG, TID
     Route: 048
     Dates: start: 20140728
  6. ADEMPAS [Suspect]
     Active Substance: RIOCIGUAT
     Indication: PULMONARY ARTERIAL HYPERTENSION
     Dosage: 2.5 MG, TID
     Route: 048
  7. ADEMPAS [Suspect]
     Active Substance: RIOCIGUAT
     Indication: PULMONARY ARTERIAL HYPERTENSION
     Dosage: 2.5 MG, TID
     Route: 048
     Dates: start: 20140728
  8. ADEMPAS [Suspect]
     Active Substance: RIOCIGUAT
     Indication: PULMONARY ARTERIAL HYPERTENSION
     Dosage: UNK UNK, TID
     Route: 048
     Dates: start: 20140729
  9. COUMADIN [Concomitant]
     Active Substance: WARFARIN SODIUM
  10. TRACLEER [Concomitant]
     Active Substance: BOSENTAN
  11. ASPIRIN. [Concomitant]
     Active Substance: ASPIRIN
  12. ADEMPAS [Suspect]
     Active Substance: RIOCIGUAT
     Indication: PULMONARY ARTERIAL HYPERTENSION
     Dosage: UNK
     Dates: start: 20140728
  13. ADEMPAS [Suspect]
     Active Substance: RIOCIGUAT
     Indication: PULMONARY ARTERIAL HYPERTENSION
     Dosage: 2.5 MG, TID
     Route: 048
     Dates: start: 20140728
  14. ADEMPAS [Suspect]
     Active Substance: RIOCIGUAT
     Indication: PULMONARY ARTERIAL HYPERTENSION
     Dosage: 2.5 MG, TID
     Route: 048

REACTIONS (20)
  - Diarrhoea [None]
  - Tachycardia [None]
  - Fatigue [Recovering/Resolving]
  - Vomiting [Unknown]
  - Respiratory failure [Unknown]
  - Pneumonia [None]
  - Pulmonary hypertension [Unknown]
  - Respiratory failure [Recovering/Resolving]
  - Fall [Unknown]
  - Dyspnoea [Unknown]
  - Pneumonia [Unknown]
  - Atrial fibrillation [Unknown]
  - Gastrointestinal haemorrhage [None]
  - Chronic obstructive pulmonary disease [None]
  - Pneumonia [Unknown]
  - Dyspnoea [Recovering/Resolving]
  - Dysentery [Unknown]
  - Hospitalisation [Unknown]
  - Dyspnoea exertional [None]
  - Diarrhoea [Unknown]

NARRATIVE: CASE EVENT DATE: 20140920
